FAERS Safety Report 19268382 (Version 1)
Quarter: 2021Q2

REPORT INFORMATION
  Report Type: Spontaneous
  Country: US (occurrence: US)
  Receive Date: 20210517
  Receipt Date: 20210517
  Transmission Date: 20210717
  Serious: Yes (Other)
  Sender: FDA-Public Use
  Company Number: US-AMNEAL PHARMACEUTICALS-2021-AMRX-01584

PATIENT
  Sex: Male

DRUGS (1)
  1. RYTARY [Suspect]
     Active Substance: CARBIDOPA\LEVODOPA
     Indication: PARKINSON^S DISEASE
     Dosage: 2 CAPSULES, 4X/DAY (AT 9AM, 1PM, 5PM AND 9 PM)
     Route: 048

REACTIONS (2)
  - Bipolar disorder [Not Recovered/Not Resolved]
  - Dry mouth [Not Recovered/Not Resolved]
